FAERS Safety Report 9419676 (Version 1)
Quarter: 2013Q3

REPORT INFORMATION
  Report Type: Report from Study
  Country: US (occurrence: US)
  Receive Date: 20130725
  Receipt Date: 20130725
  Transmission Date: 20140515
  Serious: Yes (Other)
  Sender: FDA-Public Use
  Company Number: PHEH2013US015445

PATIENT
  Age: 52 Year
  Sex: Female

DRUGS (2)
  1. TASIGNA [Suspect]
     Indication: CHRONIC MYELOID LEUKAEMIA
     Route: 048
  2. TASIGNA [Suspect]
     Dosage: UNK
     Route: 048

REACTIONS (2)
  - Lung disorder [Recovered/Resolved]
  - Pancreatitis [Recovered/Resolved]
